FAERS Safety Report 16535477 (Version 4)
Quarter: 2020Q2

REPORT INFORMATION
  Report Type: Spontaneous
  Country: US (occurrence: US)
  Receive Date: 20190705
  Receipt Date: 20200529
  Transmission Date: 20200713
  Serious: No
  Sender: FDA-Public Use
  Company Number: US-PFIZER INC-2019236218

PATIENT
  Age: 64 Year
  Sex: Female

DRUGS (2)
  1. ARTHROTEC [Suspect]
     Active Substance: DICLOFENAC SODIUM\MISOPROSTOL
     Dosage: UNK, 2X/DAY (75MG /200MG,EVERY 12 HOUR )
     Route: 048
     Dates: start: 20110628
  2. ARTHROTEC [Suspect]
     Active Substance: DICLOFENAC SODIUM\MISOPROSTOL
     Indication: OSTEOARTHRITIS
     Dosage: 450 MG, DAILY(ARTHROTEC 75, 6 PILLS A DAY)

REACTIONS (4)
  - Drug ineffective [Unknown]
  - Product dispensing error [Unknown]
  - Overdose [Unknown]
  - Intentional product misuse [Unknown]
